FAERS Safety Report 8583245-9 (Version None)
Quarter: 2012Q3

REPORT INFORMATION
  Report Type: 
  Country: None (occurrence: None)
  Receive Date: 20120809
  Receipt Date: 20120802
  Transmission Date: 20120928
  Serious: No
  Sender: FDA-Public Use
  Company Number: IT-UCBSA-063088

PATIENT
  Age: 15 Year
  Sex: Male

DRUGS (1)
  1. KEPPRA [Suspect]
     Dosage: STRENGTH : 1000 MG
     Dates: start: 20120418, end: 20120731

REACTIONS (1)
  - LEUKOPENIA [None]
